FAERS Safety Report 6824043-3 (Version None)
Quarter: 2010Q3

REPORT INFORMATION
  Report Type: 
  Country: None (occurrence: None)
  Receive Date: 20100708
  Receipt Date: 20060929
  Transmission Date: 20110219
  Serious: No
  Sender: FDA-Public Use
  Company Number: US-PFIZER INC-2006119572

PATIENT
  Sex: Female

DRUGS (10)
  1. CHANTIX [Suspect]
     Indication: EX-TOBACCO USER
     Route: 048
     Dates: start: 20060901
  2. LISINOPRIL [Concomitant]
     Route: 048
  3. ZOLOFT [Concomitant]
     Route: 048
  4. ZYPREXA [Concomitant]
     Route: 048
  5. ATIVAN [Concomitant]
     Route: 048
  6. URSODIOL [Concomitant]
     Route: 048
  7. OXYBUTYNIN CHLORIDE [Concomitant]
     Route: 048
  8. PRILOSEC [Concomitant]
     Route: 048
  9. CLARITIN-D [Concomitant]
     Route: 048
  10. RESTORIL [Concomitant]
     Route: 048

REACTIONS (5)
  - ABNORMAL DREAMS [None]
  - CONSTIPATION [None]
  - HEADACHE [None]
  - MIDDLE INSOMNIA [None]
  - NAUSEA [None]
